FAERS Safety Report 6108323-5 (Version None)
Quarter: 2009Q1

REPORT INFORMATION
  Report Type: 
  Country: None (occurrence: None)
  Receive Date: 20090309
  Receipt Date: 20090223
  Transmission Date: 20090719
  Serious: Yes (Life-Threatening, Hospitalization, Disabling)
  Sender: FDA-Public Use
  Company Number: DE-ROCHE-583378

PATIENT
  Age: 73 Year
  Sex: Male
  Weight: 82 kg

DRUGS (3)
  1. CAPECITABINE [Suspect]
     Route: 065
     Dates: start: 20060131, end: 20060413
  2. ERBITUX [Suspect]
     Indication: DRUG USE FOR UNKNOWN INDICATION
     Route: 042
     Dates: start: 20060131, end: 20060404
  3. CAMPTOSAR [Concomitant]
     Route: 042
     Dates: start: 20060131, end: 20060404

REACTIONS (6)
  - BODY TEMPERATURE INCREASED [None]
  - CELLULITIS [None]
  - IMPAIRED HEALING [None]
  - INFECTION [None]
  - OEDEMA PERIPHERAL [None]
  - SKIN ULCER [None]
